FAERS Safety Report 23224538 (Version 1)
Quarter: 2023Q4

REPORT INFORMATION
  Report Type: Spontaneous
  Country: IT (occurrence: IT)
  Receive Date: 20231124
  Receipt Date: 20231124
  Transmission Date: 20240110
  Serious: Yes (Other)
  Sender: FDA-Public Use
  Company Number: IT-ORPHANEU-2023008161

PATIENT

DRUGS (3)
  1. PASIREOTIDE [Suspect]
     Active Substance: PASIREOTIDE
     Indication: Pituitary-dependent Cushing^s syndrome
     Dosage: 600 MICROGRAM, BID
  2. PASIREOTIDE [Suspect]
     Active Substance: PASIREOTIDE
     Dosage: 150 MICROGRAM, QD ONCE DAILY
  3. KETOCONAZOLE [Suspect]
     Active Substance: KETOCONAZOLE
     Indication: Adenoma benign
     Dosage: 800 MG PER DAY

REACTIONS (2)
  - Disease progression [Unknown]
  - Adrenal insufficiency [Not Recovered/Not Resolved]
